FAERS Safety Report 19548466 (Version 1)
Quarter: 2021Q3

REPORT INFORMATION
  Report Type: Spontaneous
  Country: US (occurrence: US)
  Receive Date: 20210714
  Receipt Date: 20210714
  Transmission Date: 20211014
  Serious: Yes (Hospitalization)
  Sender: FDA-Public Use
  Company Number: None

PATIENT
  Sex: Male

DRUGS (2)
  1. DEFERASIROX 360MG XIROMED [Suspect]
     Active Substance: DEFERASIROX
     Indication: SICKLE CELL DISEASE
     Route: 048
     Dates: start: 202103
  2. DEFERASIROX  90MG [Suspect]
     Active Substance: DEFERASIROX
     Indication: SICKLE CELL DISEASE
     Route: 048

REACTIONS (3)
  - Memory impairment [None]
  - Therapy interrupted [None]
  - Tinnitus [None]
